FAERS Safety Report 9102849 (Version 2)
Quarter: 2013Q1

REPORT INFORMATION
  Report Type: Report from Study
  Country: DE (occurrence: DE)
  Receive Date: 20130219
  Receipt Date: 20130303
  Transmission Date: 20140127
  Serious: Yes (Death, Hospitalization, Other)
  Sender: FDA-Public Use
  Company Number: DE-TEVA-385909ISR

PATIENT
  Age: 64 Year
  Sex: Female
  Weight: 74 kg

DRUGS (17)
  1. FLUDARABINE [Suspect]
     Dosage: 24H FROM DAY -6 TO -2
  2. MYCOPHENOLATE MOFETIL [Suspect]
     Indication: IMMUNOSUPPRESSION
     Dosage: 10 ML DAILY; THERAPY DURATION: UNK
     Dates: start: 20120928
  3. RITUXIMAB [Suspect]
     Indication: IMMUNOSUPPRESSION
     Dosage: ON DAY -1
  4. RAPAMUNE [Suspect]
     Indication: IMMUNOSUPPRESSION
     Dosage: 3.5 ML DAILY; THERAPY DURATION: 58 DAYS
     Dates: start: 20120927, end: 20121123
  5. ATG-FRESENIUS [Suspect]
     Indication: IMMUNOSUPPRESSION
     Dosage: FROM DAY -4 TO -2
  6. TREOSULFAN [Suspect]
     Dosage: 14 G/M2, FROM DAY -6 TO -4
  7. ACICLOVIR [Concomitant]
     Indication: INFECTION PROPHYLAXIS
     Route: 048
     Dates: end: 20121112
  8. VALCYTE [Concomitant]
     Indication: HERPES SIMPLEX
     Route: 048
     Dates: start: 20121112, end: 20121127
  9. SIMVA HEXAL [Concomitant]
     Indication: HYPERCHOLESTEROLAEMIA
     Route: 048
  10. DIGIMERCK [Concomitant]
     Indication: CARDIAC FAILURE
     Route: 048
  11. FLUCONAZOLE [Concomitant]
     Indication: PROPHYLAXIS
     Route: 048
     Dates: end: 20121125
  12. NEXIUM [Concomitant]
     Indication: PROPHYLAXIS AGAINST GASTROINTESTINAL ULCER
     Dates: start: 20121106
  13. PREDNISOLON [Concomitant]
     Indication: GRAFT VERSUS HOST DISEASE
     Route: 048
     Dates: start: 20121102
  14. FENTANYL [Concomitant]
     Indication: PAIN
     Route: 062
  15. POTASSIUM [Concomitant]
     Indication: HYPOKALAEMIA
     Route: 048
     Dates: start: 20121109
  16. MAGNESIUM [Concomitant]
     Indication: BLOOD MAGNESIUM DECREASED
     Route: 048
     Dates: start: 20121112
  17. IDEOS [Concomitant]
     Indication: BLOOD CALCIUM DECREASED
     Route: 048
     Dates: start: 20121115

REACTIONS (8)
  - Toxicity to various agents [Fatal]
  - Toxic neuropathy [Fatal]
  - Asthenia [Fatal]
  - Status epilepticus [Fatal]
  - Diarrhoea [Recovered/Resolved]
  - Rash [Recovered/Resolved]
  - Cytomegalovirus infection [Fatal]
  - Sepsis [Fatal]
